FAERS Safety Report 4276662-9 (Version None)
Quarter: 2004Q1

REPORT INFORMATION
  Report Type: 
  Country: None (occurrence: None)
  Receive Date: 20040120
  Receipt Date: 20040109
  Transmission Date: 20041129
  Serious: Yes (Hospitalization)
  Sender: FDA-Public Use
  Company Number: 200410104FR

PATIENT
  Age: 65 Year
  Sex: Male

DRUGS (2)
  1. FLAGYL [Suspect]
  2. FLUOROQUINOLONE NOS [Concomitant]

REACTIONS (5)
  - CONVULSION [None]
  - DEPRESSED LEVEL OF CONSCIOUSNESS [None]
  - DISTURBANCE IN ATTENTION [None]
  - HYPOXIA [None]
  - RESPIRATORY DISTRESS [None]
